FAERS Safety Report 5349320-7 (Version None)
Quarter: 2007Q2

REPORT INFORMATION
  Report Type: 
  Country: None (occurrence: None)
  Receive Date: 20070607
  Receipt Date: 20070605
  Transmission Date: 20071010
  Serious: Yes (Congenital Anomaly)
  Sender: FDA-Public Use
  Company Number: B0473799A

PATIENT
  Age: 0 Day
  Sex: Female
  Weight: 2.6 kg

DRUGS (2)
  1. PAXIL [Suspect]
     Indication: DRUG USE FOR UNKNOWN INDICATION
     Dosage: 10MG PER DAY
     Dates: end: 20070514
  2. SOLANAX [Suspect]
     Indication: DRUG USE FOR UNKNOWN INDICATION
     Dosage: .2MG TWICE PER DAY
     Dates: end: 20070514

REACTIONS (4)
  - ASPLENIA [None]
  - CONGENITAL GREAT VESSEL ANOMALY [None]
  - DRUG EXPOSURE DURING PREGNANCY [None]
  - RED BLOOD CELL MORPHOLOGY ABNORMAL [None]
